FAERS Safety Report 10383389 (Version 3)
Quarter: 2014Q3

REPORT INFORMATION
  Report Type: Spontaneous
  Country: US (occurrence: US)
  Receive Date: 20140814
  Receipt Date: 20140919
  Transmission Date: 20150326
  Serious: No
  Sender: FDA-Public Use
  Company Number: US-AMGEN INC.-USASP2014061334

PATIENT
  Age: 60 Year
  Sex: Female

DRUGS (2)
  1. ENBREL [Suspect]
     Active Substance: ETANERCEPT
     Indication: RHEUMATOID ARTHRITIS
     Dosage: 50 MG, QWK
     Route: 058
     Dates: start: 201406, end: 20140715
  2. ENBREL [Suspect]
     Active Substance: ETANERCEPT
     Dosage: UNK
     Route: 058

REACTIONS (7)
  - Injection site bruising [Unknown]
  - Injection site recall reaction [Not Recovered/Not Resolved]
  - Injection site pruritus [Unknown]
  - Injection site swelling [Unknown]
  - Injection site erythema [Not Recovered/Not Resolved]
  - Herpes zoster [Unknown]
  - Injection site pain [Unknown]

NARRATIVE: CASE EVENT DATE: 2014
